FAERS Safety Report 25869146 (Version 1)
Quarter: 2025Q4

REPORT INFORMATION
  Report Type: Spontaneous
  Country: JP (occurrence: JP)
  Receive Date: 20251001
  Receipt Date: 20251001
  Transmission Date: 20260117
  Serious: Yes (Other)
  Sender: CHEPLAPHARM
  Company Number: JP-ELI_LILLY_AND_COMPANY-JP202312000971

PATIENT
  Age: 55 Year
  Sex: Female

DRUGS (10)
  1. OLANZAPINE [Suspect]
     Active Substance: OLANZAPINE
     Indication: Schizophrenia
     Dosage: 4 YEARS FROM 2015 TO AROUND SPRING 2020
     Route: 048
     Dates: start: 2015, end: 2020
  2. OLANZAPINE [Suspect]
     Active Substance: OLANZAPINE
     Indication: Bipolar I disorder
     Dosage: 4 YEARS FROM 2015 TO AROUND SPRING 2020
     Route: 048
     Dates: start: 2015, end: 2020
  3. OLANZAPINE [Suspect]
     Active Substance: OLANZAPINE
     Indication: Schizophrenia
     Route: 048
     Dates: start: 2016, end: 202010
  4. OLANZAPINE [Suspect]
     Active Substance: OLANZAPINE
     Indication: Bipolar I disorder
     Route: 048
     Dates: start: 2016, end: 202010
  5. OLANZAPINE [Suspect]
     Active Substance: OLANZAPINE
     Indication: Schizophrenia
     Dosage: DOSE REDUCTION OF ZYPREXA
     Route: 048
  6. OLANZAPINE [Suspect]
     Active Substance: OLANZAPINE
     Indication: Bipolar I disorder
     Dosage: DOSE REDUCTION OF ZYPREXA
     Route: 048
  7. DEPAKENE [Suspect]
     Active Substance: VALPROIC ACID
     Indication: Bipolar I disorder
     Dates: start: 2013
  8. DEPAKENE [Suspect]
     Active Substance: VALPROIC ACID
     Indication: Schizophrenia
     Dates: start: 2013
  9. DEPAKENE [Suspect]
     Active Substance: VALPROIC ACID
     Indication: Bipolar I disorder
     Dates: end: 202010
  10. DEPAKENE [Suspect]
     Active Substance: VALPROIC ACID
     Indication: Schizophrenia
     Dates: end: 202010

REACTIONS (16)
  - Hallucination, auditory [Unknown]
  - Suicidal ideation [Unknown]
  - Muscle spasms [Unknown]
  - Muscular weakness [Unknown]
  - Gastrointestinal disorder [Not Recovered/Not Resolved]
  - Autonomic nervous system imbalance [Unknown]
  - Gait disturbance [Not Recovered/Not Resolved]
  - Insomnia [Unknown]
  - Fatigue [Unknown]
  - Weight increased [Recovered/Resolved]
  - Somnolence [Unknown]
  - Bedridden [Unknown]
  - Benign neoplasm [Unknown]
  - Malnutrition [Unknown]
  - Asthenia [Unknown]
  - Extrapyramidal disorder [Unknown]
